FAERS Safety Report 14630594 (Version 1)
Quarter: 2018Q1

REPORT INFORMATION
  Report Type: Spontaneous
  Country: US (occurrence: US)
  Receive Date: 20180313
  Receipt Date: 20180313
  Transmission Date: 20180509
  Serious: No
  Sender: FDA-Public Use
  Company Number: US-GLAXOSMITHKLINE-US2018040634

PATIENT
  Sex: Male

DRUGS (5)
  1. QVAR [Concomitant]
     Active Substance: BECLOMETHASONE DIPROPIONATE
  2. VENTOLIN HFA [Suspect]
     Active Substance: ALBUTEROL SULFATE
     Indication: ASTHMA
     Dosage: 2 PUFF(S), PRN
     Route: 055
     Dates: start: 2003
  3. LORATADINE. [Concomitant]
     Active Substance: LORATADINE
  4. SIMVASTATIN. [Concomitant]
     Active Substance: SIMVASTATIN
  5. ADVAIR DISKUS [Suspect]
     Active Substance: FLUTICASONE PROPIONATE\SALMETEROL XINAFOATE
     Indication: ASTHMA
     Dosage: 1 PUFF(S), BID
     Route: 055
     Dates: start: 2001

REACTIONS (5)
  - Tremor [Recovered/Resolved]
  - Candida infection [Recovered/Resolved]
  - Pharyngeal disorder [Recovered/Resolved]
  - Dysphonia [Recovered/Resolved]
  - Ill-defined disorder [Unknown]

NARRATIVE: CASE EVENT DATE: 2017
